FAERS Safety Report 13698375 (Version 1)
Quarter: 2017Q2

REPORT INFORMATION
  Report Type: Spontaneous
  Country: US (occurrence: US)
  Receive Date: 20170628
  Receipt Date: 20170628
  Transmission Date: 20170830
  Serious: Yes (Hospitalization)
  Sender: FDA-Public Use
  Company Number: US-FRESENIUS MEDICAL CARE RENAL THERAPIES GROUP-FMC-1706-000683

PATIENT
  Age: 68 Year
  Sex: Female
  Weight: 56.5 kg

DRUGS (10)
  1. DELFLEX WITH DEXTROSE 2.5% LOW MAGNESIUM LOW CALCIUM [Suspect]
     Active Substance: CALCIUM CHLORIDE\DEXTROSE\MAGNESIUM CHLORIDE\SODIUM CHLORIDE\SODIUM LACTATE
     Indication: END STAGE RENAL DISEASE
     Dosage: 2 LITERS X 4 EXCHANGES, LAST FILL VOLUME 500 ML, MIDDAY EXCHANGE 2 LITERS
     Route: 033
  2. ASPIRIN. [Concomitant]
     Active Substance: ASPIRIN
  3. SEVELAMER [Concomitant]
     Active Substance: SEVELAMER
  4. CLOPIDOGREL [Concomitant]
     Active Substance: CLOPIDOGREL BISULFATE
  5. METOPROLOL. [Concomitant]
     Active Substance: METOPROLOL
  6. HYDRALAZINE [Concomitant]
     Active Substance: HYDRALAZINE HYDROCHLORIDE
  7. FAMOTIDINE. [Concomitant]
     Active Substance: FAMOTIDINE
  8. LISINOPRIL. [Concomitant]
     Active Substance: LISINOPRIL
  9. LISINOPRIL. [Concomitant]
     Active Substance: LISINOPRIL
  10. UBIQUINONE [Concomitant]
     Active Substance: UBIDECARENONE

REACTIONS (1)
  - Fluid overload [Recovered/Resolved]

NARRATIVE: CASE EVENT DATE: 20170620
